FAERS Safety Report 22630283 (Version 1)
Quarter: 2023Q2

REPORT INFORMATION
  Report Type: Spontaneous
  Country: US (occurrence: US)
  Receive Date: 20230622
  Receipt Date: 20230622
  Transmission Date: 20230722
  Serious: No
  Sender: FDA-Public Use
  Company Number: US-MYLANLABS-2023M1048783

PATIENT
  Sex: Male
  Weight: 95.25 kg

DRUGS (7)
  1. GABAPENTIN [Suspect]
     Active Substance: GABAPENTIN
     Indication: Paraesthesia
     Dosage: 300 MILLIGRAM, BID (TWICE A DAY)
     Route: 065
     Dates: start: 20230215
  2. BACLOFEN [Concomitant]
     Active Substance: BACLOFEN
     Indication: Muscle relaxant therapy
     Dosage: UNK
     Route: 065
  3. TRAZODONE [Concomitant]
     Active Substance: TRAZODONE HYDROCHLORIDE
     Dosage: UNK
     Route: 065
  4. HYDROXYZINE [Concomitant]
     Active Substance: HYDROXYZINE HYDROCHLORIDE
     Dosage: UNK
     Route: 065
  5. METOPROLOL [Concomitant]
     Active Substance: METOPROLOL
     Dosage: UNK
     Route: 065
  6. IRBESARTAN [Concomitant]
     Active Substance: IRBESARTAN
     Dosage: UNK
     Route: 065
  7. HYDROCHLOROTHIAZIDE [Concomitant]
     Active Substance: HYDROCHLOROTHIAZIDE
     Dosage: UNK
     Route: 065

REACTIONS (2)
  - Feeling drunk [Recovered/Resolved]
  - Nightmare [Recovered/Resolved]
